FAERS Safety Report 20218017 (Version 1)
Quarter: 2021Q4

REPORT INFORMATION
  Report Type: Spontaneous
  Country: US (occurrence: US)
  Receive Date: 20211222
  Receipt Date: 20211222
  Transmission Date: 20220303
  Serious: No
  Sender: FDA-Public Use
  Company Number: US-MYOVANT SCIENCES GMBH-2021MYSCI1100141

PATIENT
  Sex: Female

DRUGS (5)
  1. MYFEMBREE [Suspect]
     Active Substance: ESTRADIOL HEMIHYDRATE\NORETHINDRONE ACETATE\RELUGOLIX
     Indication: Uterine leiomyoma
     Dosage: 1 TAB, QD
     Route: 048
     Dates: start: 20211030
  2. MYFEMBREE [Suspect]
     Active Substance: ESTRADIOL HEMIHYDRATE\NORETHINDRONE ACETATE\RELUGOLIX
     Indication: Heavy menstrual bleeding
  3. MULTIVITAMINS                      /07504101/ [Concomitant]
     Indication: Supplementation therapy
     Dosage: 1 TAB, QD
     Route: 048
  4. FERROUS SULFATE [Concomitant]
     Active Substance: FERROUS SULFATE
     Indication: Blood iron decreased
     Dosage: 65 MILLIGRAM, BID
     Route: 048
  5. IBUPROFEN [Concomitant]
     Active Substance: IBUPROFEN
     Indication: Dysmenorrhoea
     Dosage: 600 MILLIGRAM, PRN
     Route: 048

REACTIONS (2)
  - Nocturia [Not Recovered/Not Resolved]
  - Heavy menstrual bleeding [Not Recovered/Not Resolved]
